FAERS Safety Report 12165015 (Version 1)
Quarter: 2016Q1

REPORT INFORMATION
  Report Type: Spontaneous
  Country: IT (occurrence: IT)
  Receive Date: 20160309
  Receipt Date: 20160309
  Transmission Date: 20160526
  Serious: Yes (Hospitalization, Other)
  Sender: FDA-Public Use
  Company Number: IT-PFIZER INC-2016144902

PATIENT
  Age: 92 Year
  Sex: Female

DRUGS (10)
  1. LASIX [Concomitant]
     Active Substance: FUROSEMIDE
     Dosage: 20 MG, UNK
     Route: 041
  2. UNASYN [Suspect]
     Active Substance: AMPICILLIN SODIUM\SULBACTAM SODIUM
     Indication: PYURIA
     Dosage: 3 G, DAILY
     Route: 042
     Dates: start: 20150316, end: 20150320
  3. CALCIUM GLUCONATE. [Concomitant]
     Active Substance: CALCIUM GLUCONATE
     Dosage: UNK
     Route: 041
  4. ALBUMIN (HUMAN). [Concomitant]
     Active Substance: ALBUMIN (HUMAN)
     Dosage: UNK
     Route: 042
  5. BREVA [Concomitant]
     Active Substance: ALBUTEROL\IPRATROPIUM
     Dosage: 8 GTT, UNK
     Route: 055
  6. CIPROXIN [Suspect]
     Active Substance: CIPROFLOXACIN
     Indication: PYURIA
     Dosage: 200 MG, DAILY
     Route: 042
     Dates: start: 20150314, end: 20150320
  7. SODIUM CHLORIDE. [Concomitant]
     Active Substance: SODIUM CHLORIDE
     Dosage: 500 ML, UNK
     Route: 041
  8. MEPRAL [Concomitant]
     Active Substance: OMEPRAZOLE SODIUM
     Dosage: 40 MG, UNK
     Route: 042
  9. ARIXTRA [Concomitant]
     Active Substance: FONDAPARINUX SODIUM
     Dosage: 2.5 MG, UNK
     Route: 058
  10. CLENIL [Concomitant]
     Active Substance: BECLOMETHASONE DIPROPIONATE
     Dosage: 0.8 MG, UNK
     Route: 055

REACTIONS (1)
  - Pancytopenia [Recovering/Resolving]

NARRATIVE: CASE EVENT DATE: 20150320
